FAERS Safety Report 5293921-1 (Version None)
Quarter: 2007Q2

REPORT INFORMATION
  Report Type: 
  Country: None (occurrence: None)
  Receive Date: 20070405
  Receipt Date: 20070322
  Transmission Date: 20071010
  Serious: Yes (Hospitalization)
  Sender: FDA-Public Use
  Company Number: 2007PV032123

PATIENT
  Age: 66 Year
  Sex: Female
  Weight: 92.9874 kg

DRUGS (4)
  1. BYETTA [Suspect]
     Indication: DIABETES MELLITUS NON-INSULIN-DEPENDENT
     Dosage: 5 MCG; BID; SC
     Route: 058
     Dates: start: 20070221, end: 20070319
  2. ASPIRIN [Suspect]
     Dosage: 81 MCG;QD;PO
     Route: 048
  3. CLOPIDOGREL [Concomitant]
  4. DIOVAN HCT [Concomitant]

REACTIONS (5)
  - ANAEMIA [None]
  - FAECES DISCOLOURED [None]
  - GASTROINTESTINAL ULCER HAEMORRHAGE [None]
  - NASAL CONGESTION [None]
  - PAIN IN EXTREMITY [None]
